FAERS Safety Report 7492324-9 (Version None)
Quarter: 2011Q2

REPORT INFORMATION
  Report Type: 
  Country: None (occurrence: None)
  Receive Date: 20110519
  Receipt Date: 20110511
  Transmission Date: 20111010
  Serious: Yes (Other)
  Sender: FDA-Public Use
  Company Number: BR-BAYER-2010-005199

PATIENT
  Age: 49 Year
  Sex: Female

DRUGS (9)
  1. AZATHIOPRINE [Concomitant]
     Indication: MULTIPLE SCLEROSIS
     Dosage: 1 DF, QID
     Route: 048
     Dates: start: 20101201
  2. CYMBALTA [Concomitant]
     Indication: PAIN THRESHOLD DECREASED
     Dosage: 1 DF, BID
     Route: 048
     Dates: start: 20090101
  3. PULSE THERAPY WITH CHEMOTHERAPIC MEDICATION (NOS) [Concomitant]
     Indication: GAIT DISTURBANCE
     Dosage: 1 DF, ONCE
     Route: 042
     Dates: start: 20101001, end: 20101001
  4. MILGAMMA [Concomitant]
     Indication: NEUROPATHY PERIPHERAL
     Dosage: 1 DF, TID
     Route: 048
     Dates: start: 20110401
  5. CLONAZEPAM [Concomitant]
     Indication: SLEEP DISORDER
     Dosage: 1 DF, QD
     Route: 048
     Dates: start: 20080101
  6. INTERFERON BETA-1B [Suspect]
     Indication: NEUROMYELITIS OPTICA
     Dosage: 8 MIU, QD
     Route: 058
     Dates: start: 20100601, end: 20101201
  7. INTERFERON BETA-1B [Suspect]
     Indication: MULTIPLE SCLEROSIS RELAPSE
  8. LYRICA [Concomitant]
     Indication: NEUROPATHY PERIPHERAL
     Dosage: 1 DF, TID
     Route: 048
     Dates: start: 20100701
  9. GABANEURON [Concomitant]
     Indication: EPILEPSY
     Dosage: 1 DF, QD
     Route: 048
     Dates: start: 20101101

REACTIONS (9)
  - INJECTION SITE PAIN [None]
  - VISUAL IMPAIRMENT [None]
  - INJECTION SITE INFLAMMATION [None]
  - MULTIPLE SCLEROSIS RELAPSE [None]
  - DIPLOPIA [None]
  - NEOPLASM SKIN [None]
  - INJECTION SITE ERYTHEMA [None]
  - INJECTION SITE NODULE [None]
  - NERVE INJURY [None]
